FAERS Safety Report 12987795 (Version 1)
Quarter: 2016Q4

REPORT INFORMATION
  Report Type: Report from Study
  Country: NL (occurrence: NL)
  Receive Date: 20161130
  Receipt Date: 20161130
  Transmission Date: 20170207
  Serious: Yes (Death)
  Sender: FDA-Public Use
  Company Number: NL-BAYER-2015-423638

PATIENT
  Age: 49 Year
  Sex: Female

DRUGS (1)
  1. BETAFERON [Suspect]
     Active Substance: INTERFERON BETA-1B
     Indication: RELAPSING-REMITTING MULTIPLE SCLEROSIS
     Dosage: 250 UNK, UNK
     Dates: start: 201309

REACTIONS (4)
  - Cardiac discomfort [Recovered/Resolved]
  - Fluid retention [Recovered/Resolved]
  - Death [Fatal]
  - Palpitations [Recovered/Resolved]

NARRATIVE: CASE EVENT DATE: 20150710
